FAERS Safety Report 20802315 (Version 1)
Quarter: 2022Q2

REPORT INFORMATION
  Report Type: Report from Study
  Country: US (occurrence: US)
  Receive Date: 20220509
  Receipt Date: 20220509
  Transmission Date: 20220721
  Serious: Yes (Hospitalization, Other)
  Sender: FDA-Public Use
  Company Number: US-TAKEDA-2021TUS070361

PATIENT
  Sex: Female

DRUGS (2)
  1. PONATINIB [Suspect]
     Active Substance: PONATINIB
     Indication: Chronic myeloid leukaemia
     Dosage: 115 MILLIGRAM, QD
     Route: 048
     Dates: start: 20210611
  2. PONATINIB [Suspect]
     Active Substance: PONATINIB
     Dosage: 15 MILLIGRAM, QD
     Route: 048

REACTIONS (10)
  - Illness [Unknown]
  - Muscle spasms [Unknown]
  - Ingrown hair [Unknown]
  - Limb mass [Unknown]
  - Lymphadenopathy [Unknown]
  - Breast swelling [Unknown]
  - Nausea [Unknown]
  - Bone pain [Unknown]
  - Constipation [Unknown]
  - Heart rate increased [Unknown]
